FAERS Safety Report 5446006-5 (Version None)
Quarter: 2007Q3

REPORT INFORMATION
  Report Type: 
  Country: None (occurrence: None)
  Receive Date: 20070907
  Receipt Date: 20070829
  Transmission Date: 20080115
  Serious: Yes (Hospitalization)
  Sender: FDA-Public Use
  Company Number: JP-JNJFOC-20070307070

PATIENT
  Sex: Female
  Weight: 47 kg

DRUGS (46)
  1. REMICADE [Suspect]
     Route: 042
     Dates: start: 20040812
  2. REMICADE [Suspect]
     Route: 042
     Dates: start: 20040812
  3. REMICADE [Suspect]
     Route: 042
     Dates: start: 20040812
  4. REMICADE [Suspect]
     Route: 042
     Dates: start: 20040812
  5. REMICADE [Suspect]
     Route: 042
     Dates: start: 20040812
  6. REMICADE [Suspect]
     Route: 042
     Dates: start: 20040812
  7. REMICADE [Suspect]
     Route: 042
     Dates: start: 20040812
  8. REMICADE [Suspect]
     Route: 042
     Dates: start: 20040812
  9. REMICADE [Suspect]
     Route: 042
     Dates: start: 20040812
  10. REMICADE [Suspect]
     Route: 042
     Dates: start: 20040812
  11. REMICADE [Suspect]
     Route: 042
     Dates: start: 20040812
  12. REMICADE [Suspect]
     Route: 042
     Dates: start: 20040812
  13. REMICADE [Suspect]
     Route: 042
     Dates: start: 20040812
  14. REMICADE [Suspect]
     Route: 042
     Dates: start: 20040812
  15. REMICADE [Suspect]
     Indication: RHEUMATOID ARTHRITIS
     Route: 042
     Dates: start: 20040812
  16. RHEUMATREX [Suspect]
     Route: 048
     Dates: start: 20030314
  17. RHEUMATREX [Suspect]
     Route: 048
     Dates: start: 20030314
  18. RHEUMATREX [Suspect]
     Indication: RHEUMATOID ARTHRITIS
     Route: 048
     Dates: start: 20030314
  19. PREDNISOLONE [Suspect]
     Route: 048
     Dates: start: 20031213
  20. PREDNISOLONE [Suspect]
     Route: 048
     Dates: start: 20031213
  21. PREDNISOLONE [Suspect]
     Indication: RHEUMATOID ARTHRITIS
     Route: 048
     Dates: start: 20031213
  22. CYTOTEC [Concomitant]
     Indication: GASTRITIS PROPHYLAXIS
     Route: 048
  23. CYTOTEC [Concomitant]
     Indication: ANALGESIC INTERVENTION SUPPORTIVE THERAPY
     Dosage: 400 RG
     Route: 048
  24. PYRIDOXAL [Concomitant]
     Indication: PROPHYLAXIS
     Route: 065
  25. ISCOTIN [Concomitant]
     Indication: ANTIBIOTIC PROPHYLAXIS
     Route: 048
     Dates: start: 20040130, end: 20050603
  26. VENA (DIPHENHYDRAMINE HYDROCHLORIDE) [Concomitant]
     Route: 048
     Dates: start: 20041110
  27. VENA (DIPHENHYDRAMINE HYDROCHLORIDE) [Concomitant]
     Route: 048
     Dates: start: 20041110
  28. VENA (DIPHENHYDRAMINE HYDROCHLORIDE) [Concomitant]
     Route: 048
     Dates: start: 20041110
  29. VENA (DIPHENHYDRAMINE HYDROCHLORIDE) [Concomitant]
     Route: 048
     Dates: start: 20041110
  30. VENA (DIPHENHYDRAMINE HYDROCHLORIDE) [Concomitant]
     Route: 048
     Dates: start: 20041110
  31. VENA (DIPHENHYDRAMINE HYDROCHLORIDE) [Concomitant]
     Route: 048
     Dates: start: 20041110
  32. VENA (DIPHENHYDRAMINE HYDROCHLORIDE) [Concomitant]
     Route: 048
     Dates: start: 20041110
  33. VENA (DIPHENHYDRAMINE HYDROCHLORIDE) [Concomitant]
     Route: 048
     Dates: start: 20041110
  34. VENA (DIPHENHYDRAMINE HYDROCHLORIDE) [Concomitant]
     Route: 048
     Dates: start: 20041110
  35. VENA (DIPHENHYDRAMINE HYDROCHLORIDE) [Concomitant]
     Route: 048
     Dates: start: 20041110
  36. VENA (DIPHENHYDRAMINE HYDROCHLORIDE) [Concomitant]
     Route: 048
     Dates: start: 20041110
  37. VENA (DIPHENHYDRAMINE HYDROCHLORIDE) [Concomitant]
     Indication: PROPHYLAXIS
     Route: 048
     Dates: start: 20041110
  38. VOLTAREN [Concomitant]
     Indication: RHEUMATOID ARTHRITIS
     Route: 048
  39. MOBIC [Concomitant]
     Indication: RHEUMATOID ARTHRITIS
     Route: 048
  40. FOLIAMIN [Concomitant]
     Indication: ADVERSE DRUG REACTION
     Route: 048
  41. LANSOPRAZOLE [Concomitant]
     Indication: GASTRITIS PROPHYLAXIS
     Route: 048
  42. LANSOPRAZOLE [Concomitant]
     Indication: ANALGESIC INTERVENTION SUPPORTIVE THERAPY
     Route: 048
  43. D-ALFA [Concomitant]
     Indication: OSTEOPOROSIS
     Dosage: 0.5 RG
     Route: 048
  44. LIPITOR [Concomitant]
     Indication: HYPERLIPIDAEMIA
     Route: 048
  45. MUCODYNE [Concomitant]
     Indication: PROPHYLAXIS
     Route: 048
  46. ZOLPIDEM [Concomitant]
     Indication: INSOMNIA
     Route: 048

REACTIONS (4)
  - CANDIDIASIS [None]
  - HEPATIC FUNCTION ABNORMAL [None]
  - PNEUMONIA STREPTOCOCCAL [None]
  - UPPER RESPIRATORY TRACT INFLAMMATION [None]
